FAERS Safety Report 9206432 (Version 2)
Quarter: 2013Q2

REPORT INFORMATION
  Report Type: Spontaneous
  Country: US (occurrence: US)
  Receive Date: 20130403
  Receipt Date: 20130429
  Transmission Date: 20140414
  Serious: Yes (Hospitalization, Other)
  Sender: FDA-Public Use
  Company Number: US-PFIZER INC-2013104667

PATIENT
  Age: 55 Year
  Sex: Female
  Weight: 91 kg

DRUGS (4)
  1. LYRICA [Suspect]
     Indication: FIBROMYALGIA
     Dosage: 150 MG, 2X/DAY
     Route: 048
     Dates: start: 20090928
  2. BACLOFEN [Concomitant]
     Dosage: 10 MG, 3X/DAY
  3. HYDROCODONE [Concomitant]
     Dosage: 10 MG, 4X/DAY
  4. SEROQUEL [Concomitant]
     Dosage: 150 MG, 2X/DAY

REACTIONS (4)
  - Foot fracture [Unknown]
  - Localised infection [Unknown]
  - Decubitus ulcer [Unknown]
  - Fall [Recovering/Resolving]
